FAERS Safety Report 20094333 (Version 5)
Quarter: 2022Q3

REPORT INFORMATION
  Report Type: Report from Study
  Country: JP (occurrence: JP)
  Receive Date: 20211122
  Receipt Date: 20220812
  Transmission Date: 20221027
  Serious: Yes (Hospitalization)
  Sender: FDA-Public Use
  Company Number: JP-ABBVIE-21K-087-4170216-00

PATIENT
  Age: 76 Year
  Sex: Female
  Weight: 52.2 kg

DRUGS (13)
  1. VENCLEXTA [Suspect]
     Active Substance: VENETOCLAX
     Indication: Acute myeloid leukaemia
     Route: 048
     Dates: start: 20210418, end: 20210418
  2. VENCLEXTA [Suspect]
     Active Substance: VENETOCLAX
     Route: 048
     Dates: start: 20210419, end: 202104
  3. VENCLEXTA [Suspect]
     Active Substance: VENETOCLAX
     Route: 048
     Dates: start: 20210421, end: 20210508
  4. VENCLEXTA [Suspect]
     Active Substance: VENETOCLAX
     Route: 048
     Dates: start: 20210514, end: 20210531
  5. VENCLEXTA [Suspect]
     Active Substance: VENETOCLAX
     Route: 048
     Dates: start: 20210604, end: 20210617
  6. AZACITIDINE [Concomitant]
     Active Substance: AZACITIDINE
     Indication: Acute myeloid leukaemia
     Route: 050
     Dates: start: 20210419, end: 20210423
  7. AZACITIDINE [Concomitant]
     Active Substance: AZACITIDINE
     Route: 050
     Dates: start: 20210514, end: 20210514
  8. AZACITIDINE [Concomitant]
     Active Substance: AZACITIDINE
     Route: 050
     Dates: start: 20210521, end: 20210521
  9. AZACITIDINE [Concomitant]
     Active Substance: AZACITIDINE
     Route: 050
     Dates: start: 20210604, end: 20210604
  10. AZACITIDINE [Concomitant]
     Active Substance: AZACITIDINE
     Route: 050
     Dates: start: 20210611, end: 20210611
  11. FEBUXOSTAT [Concomitant]
     Active Substance: FEBUXOSTAT
     Indication: Prophylaxis
     Route: 048
     Dates: start: 20210416
  12. LEVOFLOXACIN HEMIHYDRATE [Concomitant]
     Active Substance: LEVOFLOXACIN
     Indication: Infection prophylaxis
     Route: 048
     Dates: start: 20210421
  13. CEFTRIAXONE SODIUM [Concomitant]
     Active Substance: CEFTRIAXONE SODIUM
     Indication: Infection prophylaxis
     Route: 050
     Dates: start: 20210604, end: 20210604

REACTIONS (1)
  - Chondrocalcinosis pyrophosphate [Recovering/Resolving]

NARRATIVE: CASE EVENT DATE: 20210613
